FAERS Safety Report 4351376-5 (Version None)
Quarter: 2004Q2

REPORT INFORMATION
  Report Type: 
  Country: None (occurrence: None)
  Receive Date: 20040428
  Receipt Date: 20040408
  Transmission Date: 20050107
  Serious: Yes (Hospitalization, Other)
  Sender: FDA-Public Use
  Company Number: US_011076147

PATIENT
  Age: 81 Year
  Sex: Female
  Weight: 80 kg

DRUGS (3)
  1. HUMULIN 70/30 [Suspect]
     Indication: DIABETES MELLITUS
     Dates: start: 20000101
  2. GLUCOPHAGE [Concomitant]
  3. ATORVASTATIN CALCIUM [Concomitant]

REACTIONS (13)
  - ARTHROPOD STING [None]
  - BLOOD GLUCOSE DECREASED [None]
  - BLOOD PRESSURE DECREASED [None]
  - CARDIAC MURMUR [None]
  - CONFUSIONAL STATE [None]
  - DIFFICULTY IN WALKING [None]
  - FEELING ABNORMAL [None]
  - HAEMOGLOBIN DECREASED [None]
  - IMPAIRED HEALING [None]
  - LEG AMPUTATION [None]
  - PHARMACEUTICAL PRODUCT COMPLAINT [None]
  - TREATMENT NONCOMPLIANCE [None]
  - TREMOR [None]
